FAERS Safety Report 16825959 (Version 3)
Quarter: 2021Q2

REPORT INFORMATION
  Report Type: Report from Study
  Country: BR (occurrence: BR)
  Receive Date: 20190919
  Receipt Date: 20210607
  Transmission Date: 20210716
  Serious: Yes (Disabling, Other)
  Sender: FDA-Public Use
  Company Number: BR-EMD SERONO-9059800

PATIENT
  Age: 28 Year
  Sex: Female

DRUGS (12)
  1. CORUS                              /01121602/ [Concomitant]
     Active Substance: LOSARTAN POTASSIUM
     Dosage: 1 TABLET
  2. VITAMIN B [Concomitant]
     Active Substance: VITAMIN B
     Indication: PRODUCT USED FOR UNKNOWN INDICATION
  3. ROSUVASTATIN. [Concomitant]
     Active Substance: ROSUVASTATIN
     Indication: PRODUCT USED FOR UNKNOWN INDICATION
     Route: 048
  4. GLUCOPHAGE [Suspect]
     Active Substance: METFORMIN HYDROCHLORIDE
     Indication: PRODUCT USED FOR UNKNOWN INDICATION
  5. BUPROPION HYDROCHLORIDE. [Concomitant]
     Active Substance: BUPROPION HYDROCHLORIDE
     Indication: PRODUCT USED FOR UNKNOWN INDICATION
     Dosage: 150 ML ? 2 TABLETS
  6. PURAN [Suspect]
     Active Substance: LEVOTHYROXINE SODIUM
     Indication: PRODUCT USED FOR UNKNOWN INDICATION
  7. BUPROPION HYDROCHLORIDE. [Concomitant]
     Active Substance: BUPROPION HYDROCHLORIDE
     Dosage: 1 TABLET
  8. CORUS                              /01121602/ [Concomitant]
     Active Substance: LOSARTAN POTASSIUM
     Indication: HYPERTENSION
     Dosage: 2 TABLETS
  9. REBIF [Suspect]
     Active Substance: INTERFERON BETA-1A
     Indication: MULTIPLE SCLEROSIS
     Route: 058
     Dates: start: 20090622, end: 201903
  10. IRON [Concomitant]
     Active Substance: IRON
     Indication: PRODUCT USED FOR UNKNOWN INDICATION
  11. BIO?MANGUINHOS BETAINTERFERONA 1A 44 MCG [Suspect]
     Active Substance: INTERFERON BETA-1A
     Indication: MULTIPLE SCLEROSIS
     Dosage: THERAPY START DATE 01?APR?2019
     Route: 058
  12. COMIRNATY [Concomitant]
     Active Substance: TOZINAMERAN
     Indication: COVID-19 IMMUNISATION

REACTIONS (19)
  - Toxicity to various agents [Unknown]
  - Deafness bilateral [Not Recovered/Not Resolved]
  - Tearfulness [Unknown]
  - Pain [Not Recovered/Not Resolved]
  - Injection site bruising [Recovered/Resolved]
  - Phlebectomy [Unknown]
  - Feeling hot [Unknown]
  - Protein urine [Recovered/Resolved]
  - Multiple sclerosis [Not Recovered/Not Resolved]
  - Wrong technique in product usage process [Unknown]
  - Gait disturbance [Recovering/Resolving]
  - Injection site erythema [Not Recovered/Not Resolved]
  - Back pain [Recovered/Resolved]
  - Purpura [Recovered/Resolved]
  - Fatigue [Unknown]
  - Muscular weakness [Unknown]
  - Dermatitis [Recovered/Resolved]
  - Arthralgia [Not Recovered/Not Resolved]
  - Sleep disorder [Unknown]

NARRATIVE: CASE EVENT DATE: 200906
